FAERS Safety Report 23210573 (Version 1)
Quarter: 2023Q4

REPORT INFORMATION
  Report Type: Spontaneous
  Country: US (occurrence: None)
  Receive Date: 20231117
  Receipt Date: 20231117
  Transmission Date: 20240109
  Serious: Yes (Other)
  Sender: FDA-Public Use
  Company Number: None

PATIENT
  Sex: Male

DRUGS (2)
  1. TERIPARATIDE [Suspect]
     Active Substance: TERIPARATIDE
     Indication: Senile osteoporosis
     Dosage: 620 MCG/2.4ML SUBCUTANEOUS??INJECT 20 MCG (0.8ML) UNDER THE SKIN (SUBCUTANEOUS INJECTION) DAILY
     Route: 058
     Dates: start: 20230613
  2. GELSYN-3 [Concomitant]

REACTIONS (4)
  - Dizziness [None]
  - Headache [None]
  - Arthralgia [None]
  - Arthrodesis [None]
